FAERS Safety Report 8372294-1 (Version None)
Quarter: 2012Q2

REPORT INFORMATION
  Report Type: 
  Country: None (occurrence: None)
  Receive Date: 20120521
  Receipt Date: 20120510
  Transmission Date: 20120825
  Serious: Yes (Hospitalization)
  Sender: FDA-Public Use
  Company Number: US-BRISTOL-MYERS SQUIBB COMPANY-16465007

PATIENT
  Age: 70 Year
  Sex: Male
  Weight: 35 kg

DRUGS (13)
  1. PACLITAXEL [Suspect]
     Indication: METASTATIC MALIGNANT MELANOMA
     Dosage: RECENT DOSE 350MG-15FEB12 RESTARTED 1.25MG/M2 ON 5MAR12
     Route: 042
     Dates: start: 20111017
  2. AXITINIB [Suspect]
     Indication: METASTATIC MALIGNANT MELANOMA
     Dosage: 2X/DAY, 2 WEEKS ON /1 WEEK OFF, ORAL RESTARTED 3MG TWICE DAILY SINCE 5MAR12
     Route: 048
     Dates: start: 20110926
  3. POTASSIUM CHLORIDE [Concomitant]
  4. AMLODIPINE BESYLATE [Concomitant]
  5. HYDROCHLOROTHIAZIDE [Concomitant]
  6. MIRALAX [Concomitant]
     Dosage: 1DF= 1 TABLESPOON AS NEEDED
  7. LISINOPRIL [Concomitant]
  8. GLIPIZIDE [Concomitant]
  9. NIASPAN [Concomitant]
  10. METOPROLOL [Concomitant]
  11. METFORMIN HCL [Concomitant]
  12. CARBOPLATIN [Suspect]
     Indication: METASTATIC MALIGNANT MELANOMA
     Dosage: RECENT DOSE 480MG-15FEB12 RESTARTED 5MAR12
     Route: 042
     Dates: start: 20111017
  13. ASPIRIN [Concomitant]

REACTIONS (1)
  - DYSPNOEA [None]
